FAERS Safety Report 23015852 (Version 1)
Quarter: 2023Q4

REPORT INFORMATION
  Report Type: Spontaneous
  Country: DO (occurrence: DO)
  Receive Date: 20231002
  Receipt Date: 20231002
  Transmission Date: 20240109
  Serious: Yes (Other)
  Sender: FDA-Public Use
  Company Number: DO-009507513-2310DOM000138

PATIENT
  Age: 45 Year
  Sex: Female
  Weight: 67.585 kg

DRUGS (1)
  1. TEMODAL [Suspect]
     Active Substance: TEMOZOLOMIDE
     Indication: Glioblastoma
     Dosage: UNK

REACTIONS (1)
  - Recurrent cancer [Unknown]
